FAERS Safety Report 22703048 (Version 3)
Quarter: 2023Q4

REPORT INFORMATION
  Report Type: Report from Study
  Country: US (occurrence: US)
  Receive Date: 20230713
  Receipt Date: 20231026
  Transmission Date: 20240110
  Serious: Yes (Hospitalization, Other)
  Sender: FDA-Public Use
  Company Number: US-ABBVIE-5325024

PATIENT
  Sex: Female

DRUGS (3)
  1. RINVOQ [Suspect]
     Active Substance: UPADACITINIB
     Indication: Dermatitis atopic
     Dosage: FORM STRENGTH: 15 MILLIGRAM, ER?LAST ADMIN DATE: 2023
     Route: 048
     Dates: start: 202304
  2. RINVOQ [Suspect]
     Active Substance: UPADACITINIB
     Indication: Dermatitis atopic
     Dosage: FORM STRENGTH: 15 MILLIGRAM, ER?FIRST AND LAST ADMIN DATE: 2023
     Route: 048
  3. RINVOQ [Suspect]
     Active Substance: UPADACITINIB
     Indication: Dermatitis atopic
     Dosage: FIRST ADMIN DATE: 2023?FORM STRENGTH: 15 MILLIGRAM, ER
     Route: 048
     Dates: end: 202310

REACTIONS (10)
  - Dental operation [Unknown]
  - Swelling [Unknown]
  - Impaired healing [Not Recovered/Not Resolved]
  - Haemorrhage [Unknown]
  - Allergy to animal [Unknown]
  - Skin weeping [Unknown]
  - Dermatitis atopic [Unknown]
  - Graft complication [Unknown]
  - Dermatitis allergic [Recovering/Resolving]
  - Pruritus allergic [Recovering/Resolving]

NARRATIVE: CASE EVENT DATE: 20230101
